FAERS Safety Report 4629059-3 (Version None)
Quarter: 2005Q2

REPORT INFORMATION
  Report Type: 
  Country: None (occurrence: None)
  Receive Date: 20050404
  Receipt Date: 20050404
  Transmission Date: 20051028
  Serious: Yes (Hospitalization)
  Sender: FDA-Public Use
  Company Number: None

PATIENT
  Age: 67 Year
  Sex: Female
  Weight: 95 kg

DRUGS (5)
  1. GEMCITABINE ARM A [Suspect]
     Indication: PANCREATIC CARCINOMA
     Dosage: 2086 MG DAY 1,8,15,22,29,36
     Dates: start: 20041210
  2. GEMCITABINE ARM A [Suspect]
     Indication: PANCREATIC CARCINOMA
     Dosage: 2086 MG DAY 1,8,15,22,29,36
     Dates: start: 20041216
  3. GEMCITABINE ARM A [Suspect]
     Indication: PANCREATIC CARCINOMA
     Dosage: 2086 MG DAY 1,8,15,22,29,36
     Dates: start: 20041223
  4. GEMCITABINE ARM A [Suspect]
     Indication: PANCREATIC CARCINOMA
     Dosage: 2086 MG DAY 1,8,15,22,29,36
     Dates: start: 20041230
  5. GEMCITABINE ARM A [Suspect]
     Indication: PANCREATIC CARCINOMA
     Dosage: 2086 MG DAY 1,8,15,22,29,36
     Dates: start: 20050106

REACTIONS (18)
  - ABDOMINAL DISTENSION [None]
  - ANOREXIA [None]
  - ARRHYTHMIA [None]
  - BLOOD PRESSURE SYSTOLIC INCREASED [None]
  - BODY TEMPERATURE DECREASED [None]
  - BODY TEMPERATURE INCREASED [None]
  - BREATH SOUNDS DECREASED [None]
  - DEHYDRATION [None]
  - DIABETES MELLITUS INSULIN-DEPENDENT [None]
  - EATING DISORDER [None]
  - FATIGUE [None]
  - FEELING ABNORMAL [None]
  - NAUSEA [None]
  - OEDEMA PERIPHERAL [None]
  - ORAL INTAKE REDUCED [None]
  - PALLOR [None]
  - TACHYCARDIA [None]
  - VOMITING [None]
